FAERS Safety Report 4979461-5 (Version None)
Quarter: 2006Q2

REPORT INFORMATION
  Report Type: 
  Country: None (occurrence: None)
  Receive Date: 20060421
  Receipt Date: 20060202
  Transmission Date: 20061013
  Serious: Yes (Hospitalization)
  Sender: FDA-Public Use
  Company Number: GBWYE362403FEB06

PATIENT
  Sex: Female

DRUGS (6)
  1. ENBREL [Suspect]
     Indication: RHEUMATOID ARTHRITIS
     Dosage: UNKNOWN
     Route: 058
     Dates: start: 20031201
  2. PREDNISOLONE [Concomitant]
     Dates: start: 20000101
  3. METHOTREXATE [Concomitant]
     Dates: start: 20040501
  4. AMITRIPTYLINE HCL [Concomitant]
  5. FLUOXETINE [Concomitant]
     Dates: start: 20051001
  6. TRAMADOL HCL [Concomitant]

REACTIONS (1)
  - GRAND MAL CONVULSION [None]
